FAERS Safety Report 20073008 (Version 2)
Quarter: 2021Q4

REPORT INFORMATION
  Report Type: Report from Study
  Country: DE (occurrence: DE)
  Receive Date: 20211116
  Receipt Date: 20211118
  Transmission Date: 20220303
  Serious: Yes (Hospitalization)
  Sender: FDA-Public Use
  Company Number: DE-ABBVIE-21K-062-4160391-00

PATIENT
  Age: 62 Year
  Sex: Male

DRUGS (7)
  1. CARBIDOPA\LEVODOPA [Suspect]
     Active Substance: CARBIDOPA\LEVODOPA
     Indication: Parkinson^s disease
     Dosage: MD 3 ML CRD 5 ML/H CRN 2.7 ML/H ED 2 ML
     Route: 050
     Dates: start: 20210127, end: 2021
  2. CARBIDOPA\LEVODOPA [Suspect]
     Active Substance: CARBIDOPA\LEVODOPA
     Dosage: MD 3 ML CRD 5.2 ML/H CRN 2.5 ML/H ED 2 ML
     Route: 050
     Dates: start: 2021
  3. CIPRALEX [Concomitant]
     Active Substance: ESCITALOPRAM OXALATE
     Indication: Product used for unknown indication
  4. QUETIAPINE [Concomitant]
     Active Substance: QUETIAPINE
     Indication: Product used for unknown indication
  5. PANTOZOL [Concomitant]
     Active Substance: PANTOPRAZOLE SODIUM
     Indication: Product used for unknown indication
  6. FOLIC ACID [Concomitant]
     Active Substance: FOLIC ACID
     Indication: Product used for unknown indication
  7. CLOZAPINE [Concomitant]
     Active Substance: CLOZAPINE
     Indication: Product used for unknown indication

REACTIONS (6)
  - Acute abdomen [Recovered/Resolved]
  - Ileus [Recovered/Resolved]
  - Volvulus [Recovered/Resolved]
  - Megacolon [Recovered/Resolved]
  - Gallbladder mucocoele [Recovered/Resolved]
  - Akinesia [Not Recovered/Not Resolved]

NARRATIVE: CASE EVENT DATE: 20211102
